FAERS Safety Report 18263423 (Version 1)
Quarter: 2020Q3

REPORT INFORMATION
  Report Type: Spontaneous
  Country: US (occurrence: US)
  Receive Date: 20200914
  Receipt Date: 20200914
  Transmission Date: 20201103
  Serious: Yes (Disabling)
  Sender: FDA-Public Use
  Company Number: None

PATIENT
  Age: 45 Year
  Sex: Female
  Weight: 43.2 kg

DRUGS (7)
  1. COSENTYX [Suspect]
     Active Substance: SECUKINUMAB
     Indication: PSORIATIC ARTHROPATHY
     Dosage: ?          OTHER FREQUENCY:1XMONTH;?
     Route: 058
     Dates: start: 20190514, end: 20190522
  2. TOPAMAX [Concomitant]
     Active Substance: TOPIRAMATE
  3. WELLBUTRINE [Concomitant]
  4. CLONAZAPA [Concomitant]
  5. BOTOX [Concomitant]
     Active Substance: ONABOTULINUMTOXINA
  6. VITAMIN D [Concomitant]
     Active Substance: VITAMIN D NOS
  7. ADVIL [Concomitant]
     Active Substance: IBUPROFEN

REACTIONS (4)
  - Staphylococcal infection [None]
  - Ear congestion [None]
  - Pneumonia [None]
  - Nasopharyngitis [None]

NARRATIVE: CASE EVENT DATE: 20190601
